FAERS Safety Report 25076861 (Version 4)
Quarter: 2025Q1

REPORT INFORMATION
  Report Type: Report from Study
  Country: CA (occurrence: CA)
  Receive Date: 20250314
  Receipt Date: 20250328
  Transmission Date: 20250408
  Serious: Yes (Other)
  Sender: Alvotech
  Company Number: CA-JAMP PHARMA CORPORATION-2023-JAM-CA-01202

PATIENT
  Age: 46 Year
  Sex: Female

DRUGS (5)
  1. SIMLANDI [Suspect]
     Active Substance: ADALIMUMAB-RYVK
     Indication: Crohn^s disease
     Dosage: 40 MG WEEKLY
     Route: 065
  2. SIMLANDI [Suspect]
     Active Substance: ADALIMUMAB-RYVK
     Indication: Crohn^s disease
     Dosage: 40 MILLIGRAM, EVERY 2 WEEKS
     Route: 065
  3. SIMLANDI [Suspect]
     Active Substance: ADALIMUMAB-RYVK
     Indication: Crohn^s disease
     Dosage: 40 MG WEEKLY
     Route: 065
  4. SIMLANDI [Suspect]
     Active Substance: ADALIMUMAB-RYVK
     Indication: Crohn^s disease
     Dosage: 40 MILLIGRAM, EVERY 2 WEEKS
     Route: 065
  5. SIMLANDI [Suspect]
     Active Substance: ADALIMUMAB-RYVK
     Indication: Crohn^s disease
     Dosage: 40 MG WEEKLY
     Route: 065
     Dates: start: 20240605

REACTIONS (8)
  - Crohn^s disease [Unknown]
  - Illness [Unknown]
  - Arthralgia [Unknown]
  - Product storage error [Unknown]
  - Product administration error [Unknown]
  - Expired product administered [Unknown]
  - Inappropriate schedule of product administration [Unknown]
  - Wrong schedule [Recovered/Resolved]

NARRATIVE: CASE EVENT DATE: 20240701
